FAERS Safety Report 7951180-2 (Version None)
Quarter: 2011Q4

REPORT INFORMATION
  Report Type: 
  Country: None (occurrence: None)
  Receive Date: 20111201
  Receipt Date: 20111123
  Transmission Date: 20120403
  Serious: Yes (Other)
  Sender: FDA-Public Use
  Company Number: PHHY2011US102750

PATIENT
  Age: 70 Year
  Sex: Female

DRUGS (1)
  1. ZADITEN [Suspect]
     Indication: GASTROENTERITIS EOSINOPHILIC

REACTIONS (8)
  - NAUSEA [None]
  - ALANINE AMINOTRANSFERASE ABNORMAL [None]
  - VOMITING [None]
  - HEPATOTOXICITY [None]
  - ASPARTATE AMINOTRANSFERASE ABNORMAL [None]
  - ABDOMINAL PAIN UPPER [None]
  - BLOOD ALKALINE PHOSPHATASE INCREASED [None]
  - DECREASED APPETITE [None]
